FAERS Safety Report 4512345-5 (Version None)
Quarter: 2004Q4

REPORT INFORMATION
  Report Type: 
  Country: None (occurrence: None)
  Receive Date: 20041129
  Receipt Date: 20041115
  Transmission Date: 20050328
  Serious: Yes (Hospitalization)
  Sender: FDA-Public Use
  Company Number: FRPFM-E-20040127

PATIENT
  Age: 34 Year
  Sex: Female

DRUGS (5)
  1. CIBLOR [Suspect]
     Indication: EAR PAIN
     Route: 048
     Dates: start: 20040402
  2. ACTISKENAN [Suspect]
     Indication: EAR PAIN
     Route: 048
     Dates: start: 20040402
  3. BIPROFENID [Suspect]
     Indication: OTITIS EXTERNA
     Route: 048
  4. LAMALINE [Suspect]
     Indication: OTITIS EXTERNA
     Route: 048
  5. UNSPECIFIED DRUG [Suspect]
     Indication: EAR PAIN
     Route: 048
     Dates: start: 20040402

REACTIONS (9)
  - ABDOMINAL PAIN UPPER [None]
  - ASTHENIA [None]
  - DISCOMFORT [None]
  - FALL [None]
  - HUNGER [None]
  - LIMB INJURY [None]
  - LOSS OF CONSCIOUSNESS [None]
  - MALAISE [None]
  - WOUND [None]
